FAERS Safety Report 5646805-0 (Version None)
Quarter: 2008Q1

REPORT INFORMATION
  Report Type: 
  Country: None (occurrence: None)
  Receive Date: 20080303
  Receipt Date: 20080227
  Transmission Date: 20080703
  Serious: Yes (Death, Life-Threatening)
  Sender: FDA-Public Use
  Company Number: KR-BRISTOL-MYERS SQUIBB COMPANY-14081004

PATIENT
  Age: 55 Year
  Sex: Male

DRUGS (7)
  1. SPRYCEL [Suspect]
     Indication: CHRONIC MYELOID LEUKAEMIA
     Route: 048
     Dates: start: 20080119, end: 20080213
  2. CEFTIZOXIME SODIUM [Concomitant]
     Dates: start: 20080117, end: 20080120
  3. ISEPAMICIN [Concomitant]
     Dates: start: 20080117, end: 20080120
  4. ULTRACET [Concomitant]
     Dates: start: 20080117, end: 20080121
  5. ACYCLOVIR [Concomitant]
     Dates: start: 20080213, end: 20080218
  6. ITRACONAZOLE [Concomitant]
     Dates: start: 20080213, end: 20080218
  7. PROPACETAMOL [Concomitant]
     Dates: start: 20080213, end: 20080218

REACTIONS (3)
  - PULMONARY OEDEMA [None]
  - RESPIRATORY FAILURE [None]
  - SEPSIS [None]
